FAERS Safety Report 19075287 (Version 1)
Quarter: 2021Q1

REPORT INFORMATION
  Report Type: Spontaneous
  Country: US (occurrence: US)
  Receive Date: 20210330
  Receipt Date: 20210330
  Transmission Date: 20210420
  Serious: No
  Sender: FDA-Public Use
  Company Number: US-ROCHE-2584191

PATIENT
  Age: 95 Year
  Sex: Female
  Weight: 45.4 kg

DRUGS (7)
  1. COREG [Concomitant]
     Active Substance: CARVEDILOL
     Dosage: 2X/DAY
  2. COZAAR [Concomitant]
     Active Substance: LOSARTAN POTASSIUM
  3. ERIVEDGE [Suspect]
     Active Substance: VISMODEGIB
     Indication: SKIN CANCER
     Route: 048
     Dates: start: 202001
  4. LASIX [Concomitant]
     Active Substance: FUROSEMIDE
     Dosage: (WATER PILL)
  5. IMDUR [Concomitant]
     Active Substance: ISOSORBIDE MONONITRATE
  6. SPIRONOLACTONE. [Concomitant]
     Active Substance: SPIRONOLACTONE
     Dosage: (1/2 OF 25 MG TAB)
  7. ECOTRIN [Concomitant]
     Active Substance: ASPIRIN

REACTIONS (7)
  - Nausea [Unknown]
  - Intentional product use issue [Unknown]
  - Ageusia [Unknown]
  - Asthenia [Recovering/Resolving]
  - Fatigue [Unknown]
  - Weight decreased [Unknown]
  - Off label use [Unknown]
